FAERS Safety Report 14972712 (Version 4)
Quarter: 2020Q1

REPORT INFORMATION
  Report Type: Spontaneous
  Country: US (occurrence: US)
  Receive Date: 20180605
  Receipt Date: 20200108
  Transmission Date: 20200409
  Serious: No
  Sender: FDA-Public Use
  Company Number: US-PFIZER INC-2018225568

PATIENT
  Age: 89 Year
  Sex: Female

DRUGS (2)
  1. XALKORI [Suspect]
     Active Substance: CRIZOTINIB
     Indication: LUNG NEOPLASM MALIGNANT
     Dosage: 250 MG, 1X/DAY (1 TAB DAILY)
     Route: 048
  2. XALKORI [Suspect]
     Active Substance: CRIZOTINIB
     Dosage: 250 MG, DAILY [1 CAPSULE (250MG TOTAL) BY MOUTH DAILY]
     Route: 048

REACTIONS (2)
  - Hypoacusis [Unknown]
  - Visual impairment [Unknown]
